FAERS Safety Report 4906976-8 (Version None)
Quarter: 2006Q1

REPORT INFORMATION
  Report Type: 
  Country: None (occurrence: None)
  Receive Date: 20060207
  Receipt Date: 20060117
  Transmission Date: 20060701
  Serious: Yes (Hospitalization, Other)
  Sender: FDA-Public Use
  Company Number: US200601002869

PATIENT
  Sex: Female

DRUGS (2)
  1. HUMULIN R [Suspect]
     Indication: DIABETES MELLITUS
     Dates: start: 19960101
  2. HUMULIN N [Suspect]
     Indication: DIABETES MELLITUS
     Dates: start: 19960101

REACTIONS (8)
  - AORTIC VALVE STENOSIS [None]
  - ASTHMA [None]
  - BRONCHIOLITIS [None]
  - CELLULITIS [None]
  - DIABETES MELLITUS INADEQUATE CONTROL [None]
  - FALL [None]
  - LACERATION [None]
  - STAPHYLOCOCCAL INFECTION [None]
